FAERS Safety Report 6996262-7 (Version None)
Quarter: 2010Q3

REPORT INFORMATION
  Report Type: 
  Country: None (occurrence: None)
  Receive Date: 20100918
  Receipt Date: 20090114
  Transmission Date: 20110219
  Serious: No
  Sender: FDA-Public Use
  Company Number: US-WYE-H07709509

PATIENT
  Sex: Female

DRUGS (1)
  1. EFFEXOR XR [Suspect]
     Indication: MOOD SWINGS
     Route: 048
     Dates: start: 20090109, end: 20090109

REACTIONS (5)
  - FEELING COLD [None]
  - HEADACHE [None]
  - NAUSEA [None]
  - RETCHING [None]
  - TREMOR [None]
